FAERS Safety Report 7404328-2 (Version None)
Quarter: 2011Q2

REPORT INFORMATION
  Report Type: 
  Country: None (occurrence: None)
  Receive Date: 20110408
  Receipt Date: 20110331
  Transmission Date: 20111010
  Serious: Yes (Hospitalization)
  Sender: FDA-Public Use
  Company Number: CO-ROCHE-768643

PATIENT
  Sex: Male

DRUGS (1)
  1. MIRCERA [Suspect]
     Dosage: FREQUENCY: QMONTH
     Route: 058
     Dates: start: 20091023, end: 20110101

REACTIONS (2)
  - CHOLELITHIASIS [None]
  - ABDOMINAL PAIN [None]
